FAERS Safety Report 9494601 (Version 1)
Quarter: 2013Q3

REPORT INFORMATION
  Report Type: Spontaneous
  Country: US (occurrence: US)
  Receive Date: 20130903
  Receipt Date: 20130903
  Transmission Date: 20140515
  Serious: Yes (Hospitalization, Other)
  Sender: FDA-Public Use
  Company Number: US-PFIZER INC-2013249665

PATIENT
  Age: 63 Year
  Sex: Male
  Weight: 100.68 kg

DRUGS (3)
  1. REVATIO [Suspect]
     Indication: CARDIAC DISORDER
     Dosage: UNK, 3X/DAY
  2. LANTUS [Suspect]
     Indication: DIABETES MELLITUS
     Dosage: UNK, 2X/DAY
     Dates: end: 201308
  3. HUMALOG [Suspect]
     Indication: DIABETES MELLITUS
     Dosage: 100 IU, 4X/DAY

REACTIONS (3)
  - Extra dose administered [Unknown]
  - Diabetic coma [Recovered/Resolved]
  - Blood glucose decreased [Recovered/Resolved]
